FAERS Safety Report 13767888 (Version 5)
Quarter: 2018Q1

REPORT INFORMATION
  Report Type: Spontaneous
  Country: US (occurrence: US)
  Receive Date: 20170719
  Receipt Date: 20180112
  Transmission Date: 20180508
  Serious: Yes (Death, Hospitalization)
  Sender: FDA-Public Use
  Company Number: US-PFIZER INC-2017019978

PATIENT
  Age: 71 Year
  Sex: Female
  Weight: 58.96 kg

DRUGS (5)
  1. SYNTHROID [Concomitant]
     Active Substance: LEVOTHYROXINE SODIUM
     Dosage: UNK (TAKING THIS FOR ABOUT 30 TO 38 YEARS)
  2. IBRANCE [Suspect]
     Active Substance: PALBOCICLIB
     Indication: BREAST CANCER FEMALE
     Dosage: 75 MG, CYCLIC (DAILY, FOR 21 DAYS ON, THEN 1 WEEKS OFF)
     Route: 048
     Dates: end: 20170706
  3. IBRANCE [Suspect]
     Active Substance: PALBOCICLIB
     Dosage: 75 MG, 2X/DAY (1 TABLET IN MORNING AND 1 IN THE AFTERNOON)
     Dates: start: 2016, end: 20170828
  4. XGEVA [Concomitant]
     Active Substance: DENOSUMAB
     Dosage: UNK
  5. FASLODEX [Concomitant]
     Active Substance: FULVESTRANT
     Dosage: UNK

REACTIONS (4)
  - Large intestine perforation [Fatal]
  - Neutrophil count decreased [Unknown]
  - Neoplasm progression [Fatal]
  - Full blood count decreased [Recovered/Resolved]

NARRATIVE: CASE EVENT DATE: 2017
